FAERS Safety Report 8839291 (Version 1)
Quarter: 2012Q4

REPORT INFORMATION
  Report Type: 
  Country: US (occurrence: US)
  Receive Date: 20121015
  Receipt Date: 20121015
  Transmission Date: 20130627
  Serious: No
  Sender: FDA-Public Use
  Company Number: US-GLAXOSMITHKLINE-A0953470A

PATIENT
  Age: 13 Year
  Sex: Female

DRUGS (1)
  1. DUAC [Suspect]
     Indication: ACNE
     Route: 061
     Dates: start: 20111114, end: 20111114

REACTIONS (3)
  - Swelling face [Recovering/Resolving]
  - Erythema [Unknown]
  - Eye swelling [Unknown]
